FAERS Safety Report 5896986-9 (Version None)
Quarter: 2008Q3

REPORT INFORMATION
  Report Type: 
  Country: None (occurrence: None)
  Receive Date: 20080924
  Receipt Date: 20080403
  Transmission Date: 20090109
  Serious: Yes (Other)
  Sender: FDA-Public Use
  Company Number: US-ASTRAZENECA-2008UW06757

PATIENT
  Age: 61 Year
  Sex: Male
  Weight: 125.2 kg

DRUGS (4)
  1. SEROQUEL [Suspect]
     Indication: MAJOR DEPRESSION
     Route: 048
     Dates: start: 20040101
  2. ATENOLOL [Concomitant]
  3. INSULIN [Concomitant]
  4. BYETTA [Concomitant]

REACTIONS (5)
  - BIOPSY [None]
  - DIABETES MELLITUS [None]
  - PAIN IN EXTREMITY [None]
  - SKIN DISCOLOURATION [None]
  - SPINAL COLUMN STENOSIS [None]
